FAERS Safety Report 7169785-8 (Version None)
Quarter: 2010Q4

REPORT INFORMATION
  Report Type: 
  Country: None (occurrence: None)
  Receive Date: 20101217
  Receipt Date: 20101004
  Transmission Date: 20110411
  Serious: No
  Sender: FDA-Public Use
  Company Number: A0873447A

PATIENT
  Age: 36 Year
  Sex: Female
  Weight: 70.5 kg

DRUGS (2)
  1. SORIATANE [Suspect]
     Indication: PSORIASIS
     Dosage: 10MG UNKNOWN
     Route: 048
     Dates: start: 20100406, end: 20100518
  2. NO CONCURRENT MEDICATION [Concomitant]

REACTIONS (2)
  - HYPOAESTHESIA [None]
  - PARAESTHESIA [None]
